FAERS Safety Report 5227714-8 (Version None)
Quarter: 2007Q1

REPORT INFORMATION
  Report Type: 
  Country: None (occurrence: None)
  Receive Date: 20070202
  Receipt Date: 20070122
  Transmission Date: 20070707
  Serious: Yes (Other)
  Sender: FDA-Public Use
  Company Number: JP-PFIZER INC-2007006137

PATIENT

DRUGS (5)
  1. GABAPEN [Suspect]
     Dosage: DAILY DOSE:1200MG
     Route: 048
     Dates: start: 20061205, end: 20061219
  2. PHENYTOIN [Concomitant]
     Route: 048
  3. CARBAMAZEPINE [Concomitant]
     Route: 048
  4. CLOBAZAM [Concomitant]
     Route: 048
  5. VALPROATE SODIUM [Concomitant]
     Route: 048

REACTIONS (1)
  - PYREXIA [None]
